FAERS Safety Report 20602161 (Version 3)
Quarter: 2022Q2

REPORT INFORMATION
  Report Type: Report from Study
  Country: US (occurrence: US)
  Receive Date: 20220316
  Receipt Date: 20220401
  Transmission Date: 20220721
  Serious: Yes (Hospitalization, Other)
  Sender: FDA-Public Use
  Company Number: US-INSMED-2022-00346-USAA

PATIENT
  Sex: Female

DRUGS (2)
  1. ARIKAYCE [Suspect]
     Active Substance: AMIKACIN
     Indication: Mycobacterium avium complex infection
     Dosage: 590 MILLIGRAM, QD
     Route: 055
     Dates: start: 20220202, end: 2022
  2. ARIKAYCE [Suspect]
     Active Substance: AMIKACIN
     Dosage: 590 MILLIGRAM, QD
     Route: 055
     Dates: start: 2022, end: 20220309

REACTIONS (15)
  - Hospitalisation [Unknown]
  - Pulmonary resection [Unknown]
  - Pneumonitis [Unknown]
  - Respiratory tract congestion [Unknown]
  - Decreased appetite [Not Recovered/Not Resolved]
  - Chest discomfort [Unknown]
  - Cough [Not Recovered/Not Resolved]
  - Bronchospasm [Unknown]
  - Wheezing [Unknown]
  - Illness [Unknown]
  - Dyspnoea [Not Recovered/Not Resolved]
  - Haemoptysis [Unknown]
  - Therapy interrupted [Unknown]
  - Product dose omission issue [Unknown]
  - Device power source issue [Unknown]

NARRATIVE: CASE EVENT DATE: 20220101
